FAERS Safety Report 7457855-6 (Version None)
Quarter: 2011Q2

REPORT INFORMATION
  Report Type: 
  Country: None (occurrence: None)
  Receive Date: 20110504
  Receipt Date: 20110421
  Transmission Date: 20111010
  Serious: No
  Sender: FDA-Public Use
  Company Number: US-B.I. PHARMACEUTICALS,INC./RIDGEFIELD-2011-BP-03128BP

PATIENT
  Sex: Male

DRUGS (8)
  1. LASIX [Concomitant]
  2. PREDNISONE [Concomitant]
  3. LISINOPRIL [Concomitant]
  4. PRADAXA [Suspect]
     Indication: ANTICOAGULANT THERAPY
     Dosage: 300 MG
     Route: 048
     Dates: start: 20110117
  5. SYNTHROID [Concomitant]
  6. PROTONIK [Concomitant]
  7. SOTALOL HCL [Concomitant]
  8. PRADAXA [Suspect]
     Indication: ATRIAL FIBRILLATION
     Dosage: 300 MG
     Route: 048
     Dates: start: 20101231, end: 20110106

REACTIONS (4)
  - GASTROOESOPHAGEAL REFLUX DISEASE [None]
  - ABDOMINAL PAIN UPPER [None]
  - OESOPHAGEAL IRRITATION [None]
  - THROAT IRRITATION [None]
